FAERS Safety Report 5167978-2 (Version None)
Quarter: 2006Q4

REPORT INFORMATION
  Report Type: 
  Country: None (occurrence: None)
  Receive Date: 20061208
  Receipt Date: 20051219
  Transmission Date: 20070319
  Serious: No
  Sender: FDA-Public Use
  Company Number: US-GLAXOSMITHKLINE-A0586288A

PATIENT
  Age: 70 Year
  Sex: Female

DRUGS (3)
  1. AVANDAMET [Suspect]
     Dosage: 2MG TWICE PER DAY
     Route: 048
     Dates: start: 20030101
  2. NEURONTIN [Concomitant]
  3. LYRICA [Concomitant]
     Route: 065

REACTIONS (1)
  - WEIGHT INCREASED [None]
